FAERS Safety Report 24121338 (Version 3)
Quarter: 2024Q3

REPORT INFORMATION
  Report Type: Report from Study
  Country: AT (occurrence: AT)
  Receive Date: 20240722
  Receipt Date: 20240918
  Transmission Date: 20241017
  Serious: Yes (Life-Threatening, Hospitalization, Other)
  Sender: MYLAN
  Company Number: AT-STADA-01262677

PATIENT
  Age: 29 Year
  Sex: Male
  Weight: 88.2 kg

DRUGS (18)
  1. LENALIDOMIDE [Suspect]
     Active Substance: LENALIDOMIDE
     Indication: Diffuse large B-cell lymphoma
     Dosage: 25 MILLIGRAM, QD (D1-D1), 1X PER DAY
     Route: 048
     Dates: start: 20220202
  2. LENALIDOMIDE [Suspect]
     Active Substance: LENALIDOMIDE
     Dosage: 25 MILLIGRAM,  (LAST DOSE PRIOR TO EVENT ONSET)
     Route: 048
  3. TAFASITAMAB [Suspect]
     Active Substance: TAFASITAMAB
     Indication: Diffuse large B-cell lymphoma
     Dosage: 912 MILLIGRAM
     Route: 042
     Dates: start: 20220202, end: 20220608
  4. TAFASITAMAB [Suspect]
     Active Substance: TAFASITAMAB
     Dosage: 1044 MILLIGRAM (LAST DOSE PRIOR TO ONSET OF EVENT)
     Route: 042
     Dates: start: 20220608
  5. PREDNISOLONE [Suspect]
     Active Substance: PREDNISOLONE
     Indication: Diffuse large B-cell lymphoma
     Dosage: UNK (MILLIGRAM/SQ.METER)
     Route: 042
     Dates: start: 20220202
  6. DOXORUBICIN [Suspect]
     Active Substance: DOXORUBICIN
     Indication: Diffuse large B-cell lymphoma
     Dosage: UNK
     Route: 042
     Dates: start: 20220202
  7. CYCLOPHOSPHAMIDE [Suspect]
     Active Substance: CYCLOPHOSPHAMIDE
     Indication: Diffuse large B-cell lymphoma
     Dosage: UNK
     Route: 042
     Dates: start: 20220202
  8. VINCRISTINE [Suspect]
     Active Substance: VINCRISTINE
     Indication: Diffuse large B-cell lymphoma
     Dosage: UNK
     Route: 042
     Dates: start: 20220202
  9. RITUXIMAB [Suspect]
     Active Substance: RITUXIMAB
     Indication: Diffuse large B-cell lymphoma
     Dosage: UNK
     Route: 042
     Dates: start: 20220202
  10. RITUXIMAB [Suspect]
     Active Substance: RITUXIMAB
     Dosage: UNK LAST DOSE PRIOR TO ONSET OF EVENT
     Route: 042
     Dates: start: 20220608
  11. VALACYCLOVIR HYDROCHLORIDE [Concomitant]
     Active Substance: VALACYCLOVIR HYDROCHLORIDE
     Dosage: 500 MILLIGRAM, QD SINGLE
     Route: 048
     Dates: start: 20220203
  12. ASPIRIN [Concomitant]
     Active Substance: ASPIRIN
     Dosage: 100 MILLIGRAM, QD, SINGLE
     Route: 048
     Dates: start: 20220203
  13. LOVENOX [Concomitant]
     Active Substance: ENOXAPARIN SODIUM
     Indication: Prophylaxis
     Dosage: 40 MILLIGRAM
     Route: 058
     Dates: start: 20220617, end: 20220621
  14. PANTOPRAZOLE SODIUM [Concomitant]
     Active Substance: PANTOPRAZOLE SODIUM
     Dosage: 40 MILLIGRAM, QD SINGLE
     Route: 048
     Dates: start: 20220202
  15. PANTOPRAZOLE SODIUM [Concomitant]
     Active Substance: PANTOPRAZOLE SODIUM
     Dosage: 40 MILLIGRAM
     Route: 048
     Dates: start: 20230407
  16. SULFAMETROLE\TRIMETHOPRIM [Concomitant]
     Active Substance: SULFAMETROLE\TRIMETHOPRIM
     Indication: Prophylaxis
     Dosage: 80 MILLIGRAM, SINGLE
     Route: 048
     Dates: start: 20220204
  17. SULFAMETROLE\TRIMETHOPRIM [Concomitant]
     Active Substance: SULFAMETROLE\TRIMETHOPRIM
     Dosage: 160/800 MILLIGRAM, QD
     Route: 048
     Dates: start: 20220204
  18. BROTIZOLAM [Concomitant]
     Active Substance: BROTIZOLAM
     Indication: Insomnia
     Dosage: 0.25 MILLIGRAM
     Route: 048
     Dates: start: 20220617, end: 20220617

REACTIONS (2)
  - Febrile neutropenia [Recovered/Resolved]
  - Off label use [Recovered/Resolved]

NARRATIVE: CASE EVENT DATE: 20220617
